FAERS Safety Report 4498634-1 (Version None)
Quarter: 2004Q4

REPORT INFORMATION
  Report Type: 
  Country: None (occurrence: None)
  Receive Date: 20041111
  Receipt Date: 20041015
  Transmission Date: 20050328
  Serious: Yes (Other)
  Sender: FDA-Public Use
  Company Number: PHBS2004JP13799

PATIENT
  Age: 73 Year
  Sex: Male

DRUGS (3)
  1. PARLODEL [Suspect]
     Indication: PARKINSON'S DISEASE
     Dosage: 15 MG/DAY
     Route: 048
     Dates: end: 20041015
  2. PARLODEL [Suspect]
     Dosage: 10 MG/D
     Route: 048
     Dates: start: 20041016, end: 20041019
  3. PRAVASTATIN [Concomitant]
     Route: 048
     Dates: end: 20040820

REACTIONS (7)
  - INTERSTITIAL LUNG DISEASE [None]
  - LUNG INFILTRATION [None]
  - PULMONARY FIBROSIS [None]
  - PULMONARY HAEMORRHAGE [None]
  - PULMONARY VASCULITIS [None]
  - PYREXIA [None]
  - SMALL CELL LUNG CANCER STAGE UNSPECIFIED [None]
